FAERS Safety Report 16514472 (Version 1)
Quarter: 2019Q3

REPORT INFORMATION
  Report Type: Spontaneous
  Country: US (occurrence: US)
  Receive Date: 20190702
  Receipt Date: 20190702
  Transmission Date: 20191004
  Serious: No
  Sender: FDA-Public Use
  Company Number: US-BEH-2019103638

PATIENT
  Sex: Female

DRUGS (4)
  1. HIZENTRA [Suspect]
     Active Substance: HUMAN IMMUNOGLOBULIN G
     Dosage: UNK
     Route: 065
     Dates: start: 20190523, end: 20190523
  2. HIZENTRA [Suspect]
     Active Substance: HUMAN IMMUNOGLOBULIN G
     Dosage: UNK
     Route: 065
  3. HIZENTRA [Suspect]
     Active Substance: HUMAN IMMUNOGLOBULIN G
     Dosage: UNK
     Route: 065
  4. HIZENTRA [Suspect]
     Active Substance: HUMAN IMMUNOGLOBULIN G
     Dosage: UNK
     Route: 065

REACTIONS (9)
  - Manufacturing product shipping issue [Unknown]
  - Diarrhoea [Unknown]
  - Malaise [Unknown]
  - No adverse event [Unknown]
  - Product dose omission [Unknown]
  - Poor quality product administered [Unknown]
  - Muscle spasms [Unknown]
  - Abdominal distension [Unknown]
  - Infusion site pain [Unknown]

NARRATIVE: CASE EVENT DATE: 20190523
